FAERS Safety Report 20113684 (Version 1)
Quarter: 2021Q4

REPORT INFORMATION
  Report Type: Spontaneous
  Country: CH (occurrence: CH)
  Receive Date: 20211125
  Receipt Date: 20211125
  Transmission Date: 20220303
  Serious: Yes (Other)
  Sender: FDA-Public Use
  Company Number: None

PATIENT
  Age: 73 Year
  Sex: Male
  Weight: 106 kg

DRUGS (8)
  1. IMBRUVICA [Suspect]
     Active Substance: IBRUTINIB
     Indication: Chronic lymphocytic leukaemia
     Route: 048
     Dates: start: 20200829, end: 20210206
  2. ATORVASTATIN [Concomitant]
     Active Substance: ATORVASTATIN
     Indication: Dyslipidaemia
     Route: 048
     Dates: start: 20200923
  3. JADENU [Concomitant]
     Active Substance: DEFERASIROX
     Indication: Iron overload
     Route: 048
     Dates: start: 20210106, end: 20210310
  4. ASPIRIN [Concomitant]
     Active Substance: ASPIRIN
     Indication: Transient ischaemic attack
     Route: 048
     Dates: start: 20140101
  5. CALCIMAGON [CALCIUM] [Concomitant]
     Indication: Product used for unknown indication
     Dosage: USE UNTIL FURTHER NOTICE, IF TAKEN STEROIDS.
     Route: 048
     Dates: start: 20200901
  6. ALLOPURINOL [Concomitant]
     Active Substance: ALLOPURINOL
     Indication: Calculus urinary
     Route: 048
     Dates: start: 20200914
  7. METOPROLOL [Concomitant]
     Active Substance: METOPROLOL
     Indication: Cardiac failure
     Route: 048
     Dates: start: 20200806
  8. METFORMIN [Concomitant]
     Active Substance: METFORMIN HYDROCHLORIDE
     Indication: Diabetes mellitus
     Dosage: METFORMIN 2000 MG / TAG VOM 03.08.20	 BIS AUF WEITERES, DIABETES MELLITUS
     Route: 048
     Dates: start: 20200803

REACTIONS (1)
  - Aplasia pure red cell [Recovered/Resolved]

NARRATIVE: CASE EVENT DATE: 20200916
